FAERS Safety Report 10952417 (Version 2)
Quarter: 2015Q1

REPORT INFORMATION
  Report Type: Spontaneous
  Country: SG (occurrence: SG)
  Receive Date: 20150325
  Receipt Date: 20150330
  Transmission Date: 20150721
  Serious: Yes (Other)
  Sender: FDA-Public Use
  Company Number: SG-SA-2015SA033424

PATIENT
  Age: 30 Year
  Sex: Female

DRUGS (2)
  1. APIDRA [Suspect]
     Active Substance: INSULIN GLULISINE
     Indication: DIABETES MELLITUS
     Dosage: TREATMENT ONSET: 12-18 MTHS?DURATION: 12-18 MONTHS
     Route: 065
     Dates: start: 2013
  2. LANTUS [Suspect]
     Active Substance: INSULIN GLARGINE
     Indication: DIABETES MELLITUS
     Dosage: TREATMENT ONSET: 12-18 MTHS?DURATION: 12-18 MONTHS
     Route: 065
     Dates: start: 2013

REACTIONS (3)
  - Rhinorrhoea [Recovered/Resolved]
  - Polyarthritis [Recovered/Resolved]
  - Arthralgia [Recovered/Resolved]

NARRATIVE: CASE EVENT DATE: 2013
